FAERS Safety Report 9210916 (Version 1)
Quarter: 2013Q2

REPORT INFORMATION
  Report Type: Report from Study
  Country: US (occurrence: US)
  Receive Date: 20130404
  Receipt Date: 20130404
  Transmission Date: 20140414
  Serious: Yes (Death, Hospitalization, Other)
  Sender: FDA-Public Use
  Company Number: US-ACTELION-A-NJ2012-70021

PATIENT
  Age: 61 Year
  Sex: Female

DRUGS (8)
  1. TRACLEER [Suspect]
     Indication: PULMONARY ARTERIAL HYPERTENSION
     Dosage: 125 MG, BID
     Route: 048
     Dates: start: 200905, end: 20130324
  2. REMODULIN [Concomitant]
  3. COUMADIN [Concomitant]
  4. ASPIRIN [Concomitant]
  5. ALDACTONE [Concomitant]
     Dosage: 50 MG, QD
  6. COREG [Concomitant]
     Dosage: 3.125 MG, BID
  7. METOCLOPRAMIDE [Concomitant]
     Dosage: 10 MG, QID
  8. MYCOPHENOLATE [Concomitant]
     Dosage: 500 MG, BID

REACTIONS (10)
  - Death [Fatal]
  - Atrial flutter [Unknown]
  - Cardiac pacemaker insertion [Unknown]
  - Sleep apnoea syndrome [Unknown]
  - Parkinsonism [Unknown]
  - Atrioventricular block complete [Unknown]
  - Pulmonary hypertension [Unknown]
  - Cardiac failure congestive [Unknown]
  - Oedema [Unknown]
  - Fluid retention [Recovered/Resolved]
